FAERS Safety Report 11043091 (Version 2)
Quarter: 2015Q2

REPORT INFORMATION
  Report Type: Spontaneous
  Country: US (occurrence: US)
  Receive Date: 20150417
  Receipt Date: 20150512
  Transmission Date: 20150821
  Serious: Yes (Other)
  Sender: FDA-Public Use
  Company Number: US-BAYER-2015-117634

PATIENT
  Age: 70 Year
  Sex: Female
  Weight: 72.6 kg

DRUGS (12)
  1. TREPROSTINOL [Suspect]
     Active Substance: TREPROSTINIL
     Indication: PULMONARY HYPERTENSION
     Dosage: 10 MG, TID
     Route: 048
     Dates: start: 20141223
  2. TREPROSTINOL [Suspect]
     Active Substance: TREPROSTINIL
     Indication: PULMONARY HYPERTENSION
     Dosage: 2.25 MG, TID
     Route: 048
     Dates: start: 20141226
  3. TREPROSTINOL [Suspect]
     Active Substance: TREPROSTINIL
     Indication: PULMONARY HYPERTENSION
     Dosage: 3.125 MG, TID
     Route: 048
  4. ASPIRIN. [Concomitant]
     Active Substance: ASPIRIN
  5. TREPROSTINOL [Suspect]
     Active Substance: TREPROSTINIL
     Indication: PULMONARY HYPERTENSION
     Dosage: 3.25 MG, TID
     Route: 048
  6. TREPROSTINOL [Suspect]
     Active Substance: TREPROSTINIL
     Indication: PULMONARY HYPERTENSION
     Dosage: SLOW RELEASE TABLET, .125, .25, 1MG
     Route: 048
     Dates: start: 20141223
  7. TREPROSTINOL [Suspect]
     Active Substance: TREPROSTINIL
     Indication: PULMONARY HYPERTENSION
     Dosage: 3 MG, Q8HR
     Route: 048
     Dates: start: 20150219
  8. TREPROSTINOL [Suspect]
     Active Substance: TREPROSTINIL
     Indication: PULMONARY HYPERTENSION
     Dosage: UNK
     Route: 048
  9. TREPROSTINOL [Suspect]
     Active Substance: TREPROSTINIL
     Indication: PULMONARY HYPERTENSION
     Dosage: 1.5 MG, TID
     Route: 048
     Dates: start: 20141226
  10. TRACLEER [Concomitant]
     Active Substance: BOSENTAN\BOSENTAN MONOHYDRATE
  11. ADEMPAS [Suspect]
     Active Substance: RIOCIGUAT
     Indication: PULMONARY HYPERTENSION
  12. TYVASO [Suspect]
     Active Substance: TREPROSTINIL
     Indication: PULMONARY HYPERTENSION
     Dosage: 18-45 MCG, QID, INHALATION
     Route: 055
     Dates: start: 20130717

REACTIONS (25)
  - Heart rate increased [Unknown]
  - Chest discomfort [Unknown]
  - Dizziness [Unknown]
  - Ocular discomfort [Unknown]
  - Peripheral swelling [Recovering/Resolving]
  - Constipation [Not Recovered/Not Resolved]
  - Dyspnoea [None]
  - Paraesthesia [Unknown]
  - Diarrhoea [Unknown]
  - Feeling cold [Unknown]
  - Malaise [None]
  - Retching [None]
  - Blood pressure decreased [Unknown]
  - Arthralgia [Unknown]
  - Asthenia [None]
  - Hypophagia [Unknown]
  - Hypoaesthesia [Unknown]
  - Cough [Unknown]
  - Productive cough [None]
  - Oedema peripheral [Unknown]
  - Decreased appetite [None]
  - Oxygen saturation decreased [Unknown]
  - Walking distance test abnormal [Unknown]
  - Pain in extremity [Unknown]
  - Nausea [Unknown]

NARRATIVE: CASE EVENT DATE: 20150101
